FAERS Safety Report 5927434-8 (Version None)
Quarter: 2008Q4

REPORT INFORMATION
  Report Type: 
  Country: None (occurrence: None)
  Receive Date: 20081022
  Receipt Date: 20081022
  Transmission Date: 20090506
  Serious: Yes (Hospitalization, Disabling)
  Sender: FDA-Public Use
  Company Number: None

PATIENT
  Age: 74 Year
  Sex: Female
  Weight: 61.2356 kg

DRUGS (1)
  1. MURINE EAR WAX REMOVAL SYSTEM 15ML MEDTECH PRODUCTS, INC. [Suspect]
     Indication: CERUMEN IMPACTION
     Dosage: 5 - 10 DROPS TWICE DAILY
     Dates: start: 20080712, end: 20080712

REACTIONS (7)
  - CAUSTIC INJURY [None]
  - EAR DISCOMFORT [None]
  - ERYTHEMA [None]
  - INNER EAR DISORDER [None]
  - MALAISE [None]
  - SCREAMING [None]
  - VOMITING [None]
